FAERS Safety Report 9706685 (Version 2)
Quarter: 2013Q4

REPORT INFORMATION
  Report Type: Spontaneous
  Country: US (occurrence: US)
  Receive Date: 20131125
  Receipt Date: 20131125
  Transmission Date: 20140711
  Serious: Yes (Death, Hospitalization, Other)
  Sender: FDA-Public Use
  Company Number: US-CELGENEUS-163-21880-13101390

PATIENT
  Age: 77 Year
  Sex: Male
  Weight: 77.18 kg

DRUGS (8)
  1. REVLIMID [Suspect]
     Indication: CHRONIC LYMPHOCYTIC LEUKAEMIA
     Dosage: 15 MILLIGRAM
     Route: 048
     Dates: start: 20130819
  2. REVLIMID [Suspect]
     Dosage: 10 MILLIGRAM
     Route: 048
     Dates: start: 201309, end: 20131004
  3. ASPIRIN [Concomitant]
     Indication: CARDIOVASCULAR EVENT PROPHYLAXIS
     Dosage: 81 MILLIGRAM
     Route: 065
  4. ALLOPURINOL [Concomitant]
     Indication: GOUT
     Route: 065
  5. BACTRIM DS [Concomitant]
     Indication: PROPHYLAXIS
     Dosage: 400-80MG
     Route: 065
  6. VALTREX [Concomitant]
     Indication: HERPES ZOSTER
     Dosage: 1000 MILLIGRAM
     Route: 065
  7. VITAMIN B12 [Concomitant]
     Indication: VITAMIN SUPPLEMENTATION
     Route: 065
  8. DEXAMETHASONE [Concomitant]
     Indication: PRODUCT USED FOR UNKNOWN INDICATION
     Route: 065
     Dates: start: 20130827

REACTIONS (2)
  - Chronic lymphocytic leukaemia [Fatal]
  - Cerebrovascular accident [Not Recovered/Not Resolved]
